FAERS Safety Report 9459736 (Version 2)
Quarter: 2013Q3

REPORT INFORMATION
  Report Type: Spontaneous
  Country: US (occurrence: US)
  Receive Date: 20130815
  Receipt Date: 20130819
  Transmission Date: 20140515
  Serious: Yes (Other)
  Sender: FDA-Public Use
  Company Number: US-RB-057028-13

PATIENT
  Age: 20 Year
  Sex: Female

DRUGS (3)
  1. DELSYM COUGH LOZENGES HONEY (DEXTROMETHORPHAN HYDROBROMIDE) [Suspect]
     Indication: PRODUCT USED FOR UNKNOWN INDICATION
     Route: 048
     Dates: start: 20130802
  2. DELSYM COUGH LOZENGES HONEY (MENTHOL) [Suspect]
  3. BIRTH CONTROL PILLS [Concomitant]
     Indication: CONTRACEPTION
     Route: 048

REACTIONS (7)
  - Lip swelling [Recovered/Resolved]
  - Dyspnoea [Recovered/Resolved]
  - Throat tightness [Unknown]
  - Anxiety [Unknown]
  - Pruritus [Unknown]
  - Rash [Unknown]
  - Erythema [Unknown]
